FAERS Safety Report 16060595 (Version 1)
Quarter: 2019Q1

REPORT INFORMATION
  Report Type: Spontaneous
  Country: US (occurrence: US)
  Receive Date: 20190211
  Receipt Date: 20190211
  Transmission Date: 20190418
  Serious: No
  Sender: FDA-Public Use
  Company Number: None

PATIENT
  Age: 55 Year
  Sex: Male

DRUGS (1)
  1. TALTZ [Suspect]
     Active Substance: IXEKIZUMAB
     Indication: PSORIASIS
     Route: 058
     Dates: start: 201710

REACTIONS (6)
  - Dry skin [None]
  - Herpes zoster [None]
  - Inflammation [None]
  - Herpes virus infection [None]
  - Lip exfoliation [None]
  - Rash [None]
